FAERS Safety Report 5990571-6 (Version None)
Quarter: 2008Q4

REPORT INFORMATION
  Report Type: 
  Country: None (occurrence: None)
  Receive Date: 20081211
  Receipt Date: 20081202
  Transmission Date: 20090506
  Serious: Yes (Hospitalization)
  Sender: FDA-Public Use
  Company Number: AU-AVENTIS-200821347GDDC

PATIENT
  Age: 58 Year
  Sex: Female
  Weight: 62 kg

DRUGS (4)
  1. DOCETAXEL [Suspect]
     Route: 042
     Dates: start: 20081013, end: 20081103
  2. DOCETAXEL [Suspect]
     Route: 042
     Dates: start: 20081124, end: 20081124
  3. GEMCITABINE HCL [Suspect]
     Route: 042
     Dates: start: 20081013, end: 20081020
  4. GEMCITABINE HCL [Suspect]
     Route: 042
     Dates: start: 20081103, end: 20081110

REACTIONS (2)
  - DEPRESSION [None]
  - SUICIDAL IDEATION [None]
